FAERS Safety Report 7824562-7 (Version None)
Quarter: 2011Q4

REPORT INFORMATION
  Report Type: 
  Country: None (occurrence: None)
  Receive Date: 20111019
  Receipt Date: 20111005
  Transmission Date: 20120403
  Serious: Yes (Hospitalization)
  Sender: FDA-Public Use
  Company Number: US-ELI_LILLY_AND_COMPANY-US201101004457

PATIENT
  Sex: Female

DRUGS (8)
  1. FORTEO [Suspect]
     Indication: OSTEOPOROSIS
     Dosage: 20 UG, DAILY (1/D)
  2. FOLIC ACID [Concomitant]
  3. NEXIUM [Concomitant]
     Indication: GASTROOESOPHAGEAL REFLUX DISEASE
  4. PROTONIX [Concomitant]
  5. FORTEO [Suspect]
     Dosage: 20 UG, QD
  6. CALCIUM CARBONATE [Concomitant]
  7. ZOLOFT [Concomitant]
     Dosage: 100 MG, UNK
  8. PAXIL [Concomitant]

REACTIONS (3)
  - THROMBOSIS [None]
  - PNEUMONIA [None]
  - CELLULITIS [None]
